FAERS Safety Report 4553208-9 (Version None)
Quarter: 2005Q1

REPORT INFORMATION
  Report Type: 
  Country: None (occurrence: None)
  Receive Date: 20050113
  Receipt Date: 20050104
  Transmission Date: 20050727
  Serious: Yes (Death, Life-Threatening, Other)
  Sender: FDA-Public Use
  Company Number: 2005003898

PATIENT
  Age: 53 Year
  Sex: Male
  Weight: 113.8529 kg

DRUGS (8)
  1. ACCUPRIL [Suspect]
     Indication: HYPERTENSION
     Dosage: 20 MG ( 1 D),
     Dates: start: 20030821, end: 20030911
  2. HYDROCHLOROTHIAZIDE [Suspect]
     Indication: ILL-DEFINED DISORDER
     Dosage: 12.5 MG (12.5 MG, 1 IN 1 D),
     Dates: start: 20030828, end: 20030911
  3. CLOZAPINE [Suspect]
     Indication: SCHIZOPHRENIA
     Dosage: 400 MG (1 D)
     Dates: end: 20030911
  4. VALPROATE SODIUM [Concomitant]
  5. PIROXICAM [Concomitant]
  6. OXYBUTYNIN CHLORIDE [Concomitant]
  7. BISACODYL (BISACODYL) [Concomitant]
  8. BACLOFEN [Concomitant]

REACTIONS (7)
  - ACCIDENTAL DEATH [None]
  - ANTIPSYCHOTIC DRUG LEVEL ABOVE THERAPEUTIC [None]
  - CONVULSION [None]
  - DRUG INTERACTION [None]
  - DRUG TOXICITY [None]
  - HYPERTENSION [None]
  - PULMONARY CONGESTION [None]
